FAERS Safety Report 9618059 (Version 2)
Quarter: 2014Q2

REPORT INFORMATION
  Report Type: Spontaneous
  Country: FI (occurrence: FI)
  Receive Date: 20131012
  Receipt Date: 20140523
  Transmission Date: 20141212
  Serious: Yes (Disabling)
  Sender: FDA-Public Use
  Company Number: FI-AMGEN-FINSP2013070371

PATIENT
  Age: 65 Year
  Sex: Male

DRUGS (4)
  1. XGEVA [Suspect]
     Indication: PROSTATE CANCER
     Dosage: 120 MG, UNK
     Route: 058
     Dates: start: 20121121, end: 20130702
  2. CALCICHEW D3 FORTE [Concomitant]
     Dosage: 500 MG / 10MCG, UNK
  3. BURANA [Concomitant]
     Dosage: 800 MG, UNK
  4. OPAMOX [Concomitant]
     Dosage: 15 MG, UNK

REACTIONS (2)
  - Mucous membrane disorder [Unknown]
  - Osteonecrosis of jaw [Unknown]
